FAERS Safety Report 14128881 (Version 2)
Quarter: 2018Q1

REPORT INFORMATION
  Report Type: Spontaneous
  Country: CA (occurrence: CA)
  Receive Date: 20171026
  Receipt Date: 20180308
  Transmission Date: 20180508
  Serious: Yes (Hospitalization, Other)
  Sender: FDA-Public Use
  Company Number: CA-GLAXOSMITHKLINE-CA2014GSK040839

PATIENT
  Age: 54 Year
  Sex: Female

DRUGS (7)
  1. BENLYSTA [Suspect]
     Active Substance: BELIMUMAB
     Dosage: 620 MG, UNK
     Route: 042
  2. BENLYSTA [Suspect]
     Active Substance: BELIMUMAB
     Dosage: 620 MG, UNK
     Route: 042
  3. INFLUENZA SHOT [Concomitant]
     Active Substance: INFLUENZA VIRUS VACCINE
     Indication: PROPHYLAXIS
     Dosage: UNK
     Dates: start: 2015
  4. BENLYSTA [Suspect]
     Active Substance: BELIMUMAB
     Dosage: 620 MG, UNK
  5. BENLYSTA [Suspect]
     Active Substance: BELIMUMAB
     Dosage: 620 MG, BID
     Route: 042
  6. BENLYSTA [Suspect]
     Active Substance: BELIMUMAB
     Indication: SYSTEMIC LUPUS ERYTHEMATOSUS
     Dosage: 660 MG, Z
     Route: 042
     Dates: start: 20140827
  7. BENLYSTA [Suspect]
     Active Substance: BELIMUMAB
     Dosage: 620 MG, UNK

REACTIONS (14)
  - Nasopharyngitis [Unknown]
  - Ill-defined disorder [Recovering/Resolving]
  - Arthritis [Unknown]
  - Antibiotic therapy [Unknown]
  - Pain [Unknown]
  - Procedural pain [Recovering/Resolving]
  - Ligament injury [Unknown]
  - Fall [Unknown]
  - Arthroscopy [Unknown]
  - Meniscus injury [Unknown]
  - Orthosis user [Not Recovered/Not Resolved]
  - Foot deformity [Unknown]
  - Lower respiratory tract infection [Unknown]
  - Ligament operation [Unknown]

NARRATIVE: CASE EVENT DATE: 20141218
